FAERS Safety Report 6840131-X (Version None)
Quarter: 2010Q3

REPORT INFORMATION
  Report Type: 
  Country: None (occurrence: None)
  Receive Date: 20100713
  Receipt Date: 20100713
  Transmission Date: 20110219
  Serious: Yes (Other)
  Sender: FDA-Public Use
  Company Number: None

PATIENT
  Sex: Female
  Weight: 92.5338 kg

DRUGS (2)
  1. LASIX [Suspect]
     Indication: CARDIAC FAILURE CONGESTIVE
     Dosage: LASIX ONCE A DAY
     Dates: start: 20100601
  2. TRIAMETERENE 37.5MG + HCTZ 25MG [Suspect]
     Dosage: TRIAMETERENE + HCTZ ONCE A DAY

REACTIONS (7)
  - ABASIA [None]
  - ABDOMINAL PAIN [None]
  - CONFUSIONAL STATE [None]
  - FEELING ABNORMAL [None]
  - OEDEMA PERIPHERAL [None]
  - PAIN [None]
  - URINE OUTPUT DECREASED [None]
